FAERS Safety Report 4947848-2 (Version None)
Quarter: 2006Q1

REPORT INFORMATION
  Report Type: 
  Country: None (occurrence: None)
  Receive Date: 20060317
  Receipt Date: 20060317
  Transmission Date: 20060701
  Serious: Yes (Other)
  Sender: FDA-Public Use
  Company Number: None

PATIENT
  Age: 60 Year
  Sex: Male
  Weight: 108 kg

DRUGS (1)
  1. ANGIOMAX [Suspect]
     Indication: CORONARY ANGIOPLASTY
     Dosage: 16.5ML BOLUS, 5.5ML/HOUR   IV
     Route: 042
     Dates: start: 20060314, end: 20060314

REACTIONS (1)
  - THERAPY NON-RESPONDER [None]
